FAERS Safety Report 9316696 (Version 1)
Quarter: 2013Q2

REPORT INFORMATION
  Report Type: Report from Study
  Country: CA (occurrence: CA)
  Receive Date: 20130530
  Receipt Date: 20130530
  Transmission Date: 20140414
  Serious: Yes (Hospitalization)
  Sender: FDA-Public Use
  Company Number: CA-JNJFOC-20130517742

PATIENT
  Age: 36 Year
  Sex: Female
  Weight: 54 kg

DRUGS (6)
  1. REMICADE [Suspect]
     Indication: CROHN^S DISEASE
     Route: 042
     Dates: start: 2006
  2. ZOFRAN [Concomitant]
     Route: 042
  3. CARBAMAZEPINE [Concomitant]
     Route: 065
  4. POTASSIUM CHLORIDE [Concomitant]
     Route: 042
  5. SEROQUEL XR [Concomitant]
     Route: 048
  6. MORPHINE SULPHATE [Concomitant]
     Route: 065

REACTIONS (5)
  - Blood potassium decreased [Unknown]
  - Weight decreased [Not Recovered/Not Resolved]
  - Abdominal pain [Not Recovered/Not Resolved]
  - Blood magnesium decreased [Unknown]
  - Nausea [Not Recovered/Not Resolved]
